FAERS Safety Report 21489873 (Version 1)
Quarter: 2022Q4

REPORT INFORMATION
  Report Type: Spontaneous
  Country: FR (occurrence: FR)
  Receive Date: 20221021
  Receipt Date: 20221021
  Transmission Date: 20230113
  Serious: Yes (Hospitalization, Other)
  Sender: FDA-Public Use
  Company Number: FR-AFSSAPS-TS20222226

PATIENT
  Age: 81 Year
  Sex: Male
  Weight: 84.7 kg

DRUGS (3)
  1. IBUPROFEN [Suspect]
     Active Substance: IBUPROFEN
     Indication: Product used for unknown indication
     Dosage: 1 DOSAGE FORM, ONCE A DAY
     Route: 048
     Dates: start: 20220805, end: 20220823
  2. TAMSULOSIN [Suspect]
     Active Substance: TAMSULOSIN
     Indication: Bladder dilatation
     Dosage: 400 MICROGRAM, ONCE A DAY
     Route: 048
     Dates: start: 202208, end: 20220825
  3. BENSERAZIDE HYDROCHLORIDE\LEVODOPA [Suspect]
     Active Substance: BENSERAZIDE HYDROCHLORIDE\LEVODOPA
     Indication: Parkinson^s disease
     Dosage: 62.5 MILLIGRAM, ONCE A DAY
     Route: 048
     Dates: start: 20220818, end: 20220819

REACTIONS (1)
  - Drug reaction with eosinophilia and systemic symptoms [Recovered/Resolved]

NARRATIVE: CASE EVENT DATE: 20220819
